FAERS Safety Report 6209628-X (Version None)
Quarter: 2009Q2

REPORT INFORMATION
  Report Type: 
  Country: None (occurrence: None)
  Receive Date: 20090601
  Receipt Date: 20090528
  Transmission Date: 20091009
  Serious: No
  Sender: FDA-Public Use
  Company Number: US-B.I. PHARMACEUTICALS,INC./RIDGEFIELD-2009-BP-01147BP

PATIENT
  Sex: Female

DRUGS (5)
  1. SPIRIVA [Suspect]
     Indication: CHRONIC OBSTRUCTIVE PULMONARY DISEASE
     Dosage: 18MCG
     Route: 055
     Dates: start: 20040101
  2. MOTRIN [Concomitant]
     Indication: PAIN
     Route: 048
  3. TRAMADOL HCL [Concomitant]
     Indication: PAIN
     Route: 048
  4. GABAPENTIN [Concomitant]
     Indication: PAIN
     Route: 048
  5. ADVAIR HFA [Concomitant]
     Indication: CHRONIC OBSTRUCTIVE PULMONARY DISEASE
     Route: 055

REACTIONS (2)
  - CHOLELITHIASIS [None]
  - DYSPNOEA [None]
